FAERS Safety Report 11026603 (Version 1)
Quarter: 2015Q2

REPORT INFORMATION
  Report Type: Spontaneous
  Country: US (occurrence: US)
  Receive Date: 20150414
  Receipt Date: 20150414
  Transmission Date: 20150821
  Serious: No
  Sender: FDA-Public Use
  Company Number: US-GALDERMA-US15001147

PATIENT
  Age: 54 Year
  Sex: Female

DRUGS (3)
  1. SODIUM SULFACETAMIDE 5% SULFER CLEANSER [Concomitant]
     Indication: THERAPEUTIC SKIN CARE TOPICAL
     Dosage: 5%
     Route: 061
     Dates: start: 201211
  2. SOOLANTRA [Suspect]
     Active Substance: IVERMECTIN
     Indication: ROSACEA
     Dosage: 1%
     Route: 061
     Dates: start: 20150226
  3. PROTOPIC (TACROLIMUS) TOPICAL [Concomitant]
     Indication: ROSACEA
     Route: 061
     Dates: start: 201402

REACTIONS (4)
  - Rash erythematous [Not Recovered/Not Resolved]
  - Emotional distress [Not Recovered/Not Resolved]
  - Erythema [Not Recovered/Not Resolved]
  - Condition aggravated [Not Recovered/Not Resolved]

NARRATIVE: CASE EVENT DATE: 20150301
